FAERS Safety Report 21976783 (Version 1)
Quarter: 2023Q1

REPORT INFORMATION
  Report Type: Spontaneous
  Country: US (occurrence: US)
  Receive Date: 20230210
  Receipt Date: 20230210
  Transmission Date: 20230418
  Serious: No
  Sender: FDA-Public Use
  Company Number: US-BIOGEN-2022BI01138291

PATIENT
  Age: 47 Year
  Sex: Female

DRUGS (9)
  1. PLEGRIDY [Suspect]
     Active Substance: PEGINTERFERON BETA-1A
     Indication: Multiple sclerosis
     Route: 050
     Dates: start: 20171130
  2. PLEGRIDY [Suspect]
     Active Substance: PEGINTERFERON BETA-1A
     Route: 050
     Dates: start: 20220705
  3. PLEGRIDY [Suspect]
     Active Substance: PEGINTERFERON BETA-1A
     Dosage: INJECT 125MCG SUBCUTANEOUSLY EVERY 2 WEEKS
     Route: 050
  4. CLARITIN-D 24 HOUR [Concomitant]
     Active Substance: LORATADINE\PSEUDOEPHEDRINE SULFATE
     Route: 050
  5. SINGULAIR [Concomitant]
     Active Substance: MONTELUKAST SODIUM
     Route: 050
  6. FLONASE [Concomitant]
     Active Substance: FLUTICASONE PROPIONATE
     Route: 050
  7. PHENTERMINE HYDROCHLORIDE [Concomitant]
     Active Substance: PHENTERMINE HYDROCHLORIDE
     Route: 050
  8. LEVOTHYROXINE SODIUM [Concomitant]
     Active Substance: LEVOTHYROXINE SODIUM
     Route: 050
  9. MELOXICAM [Concomitant]
     Active Substance: MELOXICAM
     Route: 050

REACTIONS (6)
  - Drug delivery system malfunction [Unknown]
  - Drug dose omission by device [Unknown]
  - Injection site bruising [Unknown]
  - Injection site erythema [Unknown]
  - Injection site pruritus [Unknown]
  - Influenza like illness [Unknown]

NARRATIVE: CASE EVENT DATE: 20220705
